FAERS Safety Report 9457330 (Version 1)
Quarter: 2013Q3

REPORT INFORMATION
  Report Type: Report from Study
  Country: BR (occurrence: BR)
  Receive Date: 20130814
  Receipt Date: 20130814
  Transmission Date: 20140515
  Serious: Yes (Other)
  Sender: FDA-Public Use
  Company Number: PHHY2013BR065777

PATIENT
  Sex: Female

DRUGS (2)
  1. TEGRETOL CR [Suspect]
     Indication: NERVOUS SYSTEM DISORDER
     Dosage: 2.5 DF, DAILY (1.5 TABLET AT NIGHT AND 1 ENTIRE TABLET IN THE MORNING)
     Route: 048
     Dates: start: 201303
  2. ATENOLOL [Concomitant]
     Indication: HYPERTENSION
     Dosage: 1 DF, PER DAY
     Route: 048
     Dates: start: 2012

REACTIONS (6)
  - Hydrocephalus [Not Recovered/Not Resolved]
  - Malaise [Not Recovered/Not Resolved]
  - Gait disturbance [Recovered/Resolved]
  - Micturition disorder [Recovering/Resolving]
  - Pain [Not Recovered/Not Resolved]
  - Tremor [Recovered/Resolved]
